FAERS Safety Report 8884738 (Version 2)
Quarter: 2013Q4

REPORT INFORMATION
  Report Type: Spontaneous
  Country: BR (occurrence: BR)
  Receive Date: 20121105
  Receipt Date: 20131127
  Transmission Date: 20140711
  Serious: Yes (Other)
  Sender: FDA-Public Use
  Company Number: BR-AMGEN-BRASP2012069885

PATIENT
  Age: 53 Year
  Sex: Female
  Weight: 76 kg

DRUGS (8)
  1. ENBREL [Suspect]
     Indication: RHEUMATOID ARTHRITIS
     Dosage: 50 MG, ONCE WEEKLY
     Route: 058
     Dates: start: 201108
  2. ENBREL [Suspect]
     Dosage: 50 MG, QWK
     Route: 065
  3. ENBREL [Suspect]
     Dosage: UNK
     Route: 065
  4. METHOTREXATE [Concomitant]
     Dosage: 4 TABLETS OF STRENGTH 2.5 MG (10 MG) 1X (UNSPECIFIED FREQUENCY)
  5. OMEPRAZOLE [Concomitant]
     Dosage: 20 MG, 1X/DAY
  6. FOLIC ACID [Concomitant]
     Dosage: UNK, 2X/WEEK
  7. LOSARTAN [Concomitant]
     Dosage: 50 MG, 1X/DAY
  8. ARFLEX [Concomitant]
     Dosage: UNK

REACTIONS (3)
  - Arthropathy [Unknown]
  - Cardiac arrest [Recovering/Resolving]
  - Infarction [Recovering/Resolving]
